FAERS Safety Report 13754181 (Version 4)
Quarter: 2018Q3

REPORT INFORMATION
  Report Type: Report from Study
  Country: US (occurrence: US)
  Receive Date: 20170714
  Receipt Date: 20180815
  Transmission Date: 20181010
  Serious: Yes (Other)
  Sender: FDA-Public Use
  Company Number: US-SA-2017SA123227

PATIENT
  Age: 32 Year
  Sex: Female

DRUGS (5)
  1. LEMTRADA [Suspect]
     Active Substance: ALEMTUZUMAB
     Dosage: 12 MG,QD
     Route: 041
     Dates: start: 20170706, end: 20170707
  2. LEMTRADA [Suspect]
     Active Substance: ALEMTUZUMAB
     Dosage: 12 MG, QD
     Route: 041
     Dates: start: 20180625, end: 20180625
  3. LEMTRADA [Suspect]
     Active Substance: ALEMTUZUMAB
     Dosage: 12 MD, QD
     Route: 041
     Dates: start: 20180627, end: 20180627
  4. LEMTRADA [Suspect]
     Active Substance: ALEMTUZUMAB
     Dosage: 12 MG, QD
     Route: 041
     Dates: start: 20180629, end: 20180629
  5. LEMTRADA [Suspect]
     Active Substance: ALEMTUZUMAB
     Indication: RELAPSING-REMITTING MULTIPLE SCLEROSIS
     Dosage: 12 MG,QD
     Route: 041
     Dates: start: 20170626, end: 20170628

REACTIONS (14)
  - Chest pain [Recovered/Resolved]
  - Bradycardia [Unknown]
  - Electrocardiogram T wave abnormal [Unknown]
  - Herpes zoster [Unknown]
  - Hypersensitivity [Recovered/Resolved]
  - Cardiac failure congestive [Recovering/Resolving]
  - Chest discomfort [Unknown]
  - Inappropriate schedule of drug administration [Unknown]
  - Electrocardiogram T wave inversion [Recovered/Resolved]
  - Fluid retention [Recovering/Resolving]
  - Dyspnoea [Recovered/Resolved]
  - Swelling [Recovered/Resolved]
  - Malaise [Unknown]
  - Insomnia [Recovered/Resolved]

NARRATIVE: CASE EVENT DATE: 20170626
